FAERS Safety Report 9281703 (Version 3)
Quarter: 2013Q3

REPORT INFORMATION
  Report Type: Report from Study
  Country: CA (occurrence: CA)
  Receive Date: 20130509
  Receipt Date: 20130813
  Transmission Date: 20140515
  Serious: Yes (Other)
  Sender: FDA-Public Use
  Company Number: CA-ROCHE-1220878

PATIENT
  Sex: Male

DRUGS (2)
  1. NUTROPIN [Suspect]
     Indication: INSULIN-LIKE GROWTH FACTOR DECREASED
     Route: 065
     Dates: start: 201001
  2. NUTROPIN [Suspect]
     Route: 065
     Dates: start: 201301

REACTIONS (8)
  - Muscle rupture [Unknown]
  - Cyst [Not Recovered/Not Resolved]
  - Depression [Unknown]
  - Arrhythmia [Recovering/Resolving]
  - Arthralgia [Recovering/Resolving]
  - Fatigue [Unknown]
  - Musculoskeletal pain [Unknown]
  - Neck pain [Recovering/Resolving]
